FAERS Safety Report 9777776 (Version 1)
Quarter: 2013Q4

REPORT INFORMATION
  Report Type: Report from Study
  Country: US (occurrence: US)
  Receive Date: 20131223
  Receipt Date: 20131223
  Transmission Date: 20140711
  Serious: Yes (Other)
  Sender: FDA-Public Use
  Company Number: US-ROCHE-1318705

PATIENT
  Age: 2 Year
  Sex: Female
  Weight: 22.9 kg

DRUGS (7)
  1. CELLCEPT [Suspect]
     Indication: PRODUCT USED FOR UNKNOWN INDICATION
     Route: 065
  2. BACTRIM [Concomitant]
     Dosage: SINGLE STRENGTH
     Route: 065
  3. ROCALTROL [Concomitant]
     Route: 065
  4. PREDNISONE [Concomitant]
     Route: 065
  5. PROGRAF [Concomitant]
     Route: 065
  6. IRON SULFATE [Concomitant]
     Dosage: 2X OF 75 MG PER 0.6 ML SLOUTION
     Route: 065
  7. VITAMIN D3 [Concomitant]
     Dosage: 1200 UNITS DAILY
     Route: 065

REACTIONS (5)
  - Renal transplant [Unknown]
  - Skin papilloma [Unknown]
  - Growth retardation [Unknown]
  - Abnormal behaviour [Unknown]
  - Renal failure chronic [Unknown]
